FAERS Safety Report 5904235-8 (Version None)
Quarter: 2008Q3

REPORT INFORMATION
  Report Type: 
  Country: None (occurrence: None)
  Receive Date: 20080930
  Receipt Date: 20080930
  Transmission Date: 20090109
  Serious: Yes (Hospitalization)
  Sender: FDA-Public Use
  Company Number: None

PATIENT
  Age: 86 Year
  Sex: Male

DRUGS (2)
  1. PIPERACILLIN AND TAZOBACTAM [Suspect]
     Indication: BALANITIS
     Dosage: 3.375 GM QID IV
     Route: 042
     Dates: start: 20080812, end: 20080820
  2. PIPERACILLIN AND TAZOBACTAM [Suspect]
     Indication: URINARY TRACT INFECTION
     Dosage: 3.375 GM QID IV
     Route: 042
     Dates: start: 20080812, end: 20080820

REACTIONS (1)
  - RASH [None]
